FAERS Safety Report 21692681 (Version 1)
Quarter: 2022Q4

REPORT INFORMATION
  Report Type: Spontaneous
  Country: GB (occurrence: GB)
  Receive Date: 20221207
  Receipt Date: 20221207
  Transmission Date: 20230112
  Serious: No
  Sender: FDA-Public Use
  Company Number: None

PATIENT
  Age: 58 Year
  Sex: Female
  Weight: 85.3 kg

DRUGS (8)
  1. TOLVAPTAN [Suspect]
     Active Substance: TOLVAPTAN
     Indication: Congenital cystic kidney disease
     Dosage: 15 MILLIGRAM, UNK, TABLET (UNCOATED, ORAL)
     Route: 048
     Dates: start: 20191023
  2. TOLVAPTAN [Suspect]
     Active Substance: TOLVAPTAN
     Dosage: 45 MILLIGRAM, UNK, TABLET (UNCOATED, ORAL)
     Route: 048
     Dates: start: 20191023
  3. TOLVAPTAN [Suspect]
     Active Substance: TOLVAPTAN
     Dosage: 30 MILLIGRAM, UNK, TABLET (UNCOATED, ORAL)
     Route: 048
     Dates: start: 20200115
  4. TOLVAPTAN [Suspect]
     Active Substance: TOLVAPTAN
     Dosage: 60 MILLIGRAM, UNK, TABLET (UNCOATED, ORAL)
     Route: 048
     Dates: start: 20200115
  5. TOLVAPTAN [Suspect]
     Active Substance: TOLVAPTAN
     Dosage: 90 MILLIGRAM, UNK, TABLET (UNCOATED, ORAL)
     Route: 048
     Dates: start: 20200710
  6. TOLVAPTAN [Suspect]
     Active Substance: TOLVAPTAN
     Dosage: 30 MILLIGRAM, UNK, TABLET (UNCOATED, ORAL)
     Route: 048
     Dates: start: 20200710
  7. TOLVAPTAN [Suspect]
     Active Substance: TOLVAPTAN
     Dosage: 30 MILLIGRAM, UNK, TABLET (UNCOATED, ORAL)
     Route: 048
     Dates: start: 20201005
  8. TOLVAPTAN [Suspect]
     Active Substance: TOLVAPTAN
     Dosage: 60 MILLIGRAM, UNK, TABLET (UNCOATED, ORAL)
     Route: 048
     Dates: start: 20201005

REACTIONS (7)
  - Abdominal pain [Unknown]
  - Dry eye [Recovered/Resolved]
  - Ear pruritus [Not Recovered/Not Resolved]
  - Headache [Recovered/Resolved]
  - Headache [Unknown]
  - Nausea [Recovered/Resolved]
  - Rash [Recovered/Resolved]

NARRATIVE: CASE EVENT DATE: 20200116
